FAERS Safety Report 16494268 (Version 1)
Quarter: 2019Q2

REPORT INFORMATION
  Report Type: Spontaneous
  Country: DK (occurrence: DK)
  Receive Date: 20190628
  Receipt Date: 20190628
  Transmission Date: 20190711
  Serious: Yes (Hospitalization)
  Sender: FDA-Public Use
  Company Number: DK-ACCORD-135052

PATIENT
  Age: 70 Year
  Sex: Male

DRUGS (11)
  1. OZEMPIC [Concomitant]
     Active Substance: SEMAGLUTIDE
     Indication: TYPE 2 DIABETES MELLITUS
     Dosage: STRENGTH: 1MG, SOLUTION FOR INJECTION IN PRE-FILLED PEN
     Dates: start: 201904
  2. SIMVASTATIN. [Suspect]
     Active Substance: SIMVASTATIN
     Indication: HYPERCHOLESTEROLAEMIA
     Dosage: STRENGTH: 40 MG
     Route: 048
     Dates: start: 201507, end: 20190523
  3. SILDENAFIL. [Concomitant]
     Active Substance: SILDENAFIL
     Indication: ERECTILE DYSFUNCTION
     Dosage: STRENGTH: 25MG?DOSE: UNKNOWN
     Route: 048
     Dates: start: 20180423
  4. METOPROLOL. [Concomitant]
     Active Substance: METOPROLOL
     Indication: ARRHYTHMIA
     Dosage: STRENGTH: 50MG
     Route: 048
     Dates: start: 20160210
  5. BETOLVEX [Concomitant]
     Active Substance: CYANOCOBALAMIN
     Indication: VITAMIN B12 DEFICIENCY
     Dosage: STRENGTH: 1MG
     Route: 048
     Dates: start: 20150721
  6. JARDIANCE [Concomitant]
     Active Substance: EMPAGLIFLOZIN
     Indication: TYPE 2 DIABETES MELLITUS
     Dosage: STRENGTH: 25MG
     Route: 048
     Dates: start: 201904
  7. METFORMIN [Concomitant]
     Active Substance: METFORMIN HYDROCHLORIDE
     Indication: TYPE 2 DIABETES MELLITUS
     Dosage: STRENGTH: 1000MG
     Route: 048
     Dates: start: 20150721, end: 20190527
  8. AMLODIPINE [Concomitant]
     Active Substance: AMLODIPINE BESYLATE
     Indication: HYPERTENSION
     Dosage: STRENGTH: 10MG
     Route: 048
     Dates: start: 20150721
  9. PRADAXA [Concomitant]
     Active Substance: DABIGATRAN ETEXILATE MESYLATE
     Indication: THROMBOSIS PROPHYLAXIS
     Dosage: STRENGTH: 150MG
     Route: 048
     Dates: start: 20150721
  10. TRESIBA 200 FLEXTOUCH [Concomitant]
     Indication: DIABETES MELLITUS
     Dosage: STRENGTH: 200UML DOSE: DOSE AS DIRECTED
     Dates: start: 20160210, end: 20190527
  11. CANDESARTAN. [Concomitant]
     Active Substance: CANDESARTAN
     Indication: HYPERTENSION
     Dosage: STRENGTH: 8MG
     Route: 048
     Dates: start: 20150721

REACTIONS (6)
  - Muscular weakness [Unknown]
  - Chromaturia [Unknown]
  - Blood creatine phosphokinase increased [Unknown]
  - Rhabdomyolysis [Recovering/Resolving]
  - Myoglobin blood increased [Unknown]
  - Dysstasia [Unknown]

NARRATIVE: CASE EVENT DATE: 20190519
